FAERS Safety Report 17484473 (Version 3)
Quarter: 2020Q1

REPORT INFORMATION
  Report Type: Spontaneous
  Country: CH (occurrence: CH)
  Receive Date: 20200302
  Receipt Date: 20200323
  Transmission Date: 20200409
  Serious: Yes (Other)
  Sender: FDA-Public Use
  Company Number: CH-AMERICAN REGENT INC-2020000497

PATIENT
  Age: 46 Year
  Sex: Female
  Weight: 72 kg

DRUGS (10)
  1. FLUTICASONE FUROATE [Concomitant]
     Active Substance: FLUTICASONE FUROATE
     Indication: PRODUCT USED FOR UNKNOWN INDICATION
     Dosage: 2 DOSAGE FORM (1 DOSAGE FORMS, 2 IN 1 D)
     Dates: start: 201909
  2. FERINJECT [Suspect]
     Active Substance: FERRIC CARBOXYMALTOSE
     Indication: IRON DEFICIENCY
     Dosage: 100 MG FERINJECT ONCE A WEEK DURING 3 WEEKS (100 MG, 1 IN 1 WK)
     Dates: start: 20190612, end: 20190612
  3. FERINJECT [Suspect]
     Active Substance: FERRIC CARBOXYMALTOSE
     Dosage: 200 MG, 1 IN 1 WK
     Dates: start: 20191223, end: 20191223
  4. FERINJECT [Suspect]
     Active Substance: FERRIC CARBOXYMALTOSE
     Dosage: 100 MILLIGRAM, 1 IN 1 M
     Dates: start: 20190619, end: 20190619
  5. FERINJECT [Suspect]
     Active Substance: FERRIC CARBOXYMALTOSE
     Dosage: 100 MILLIGRAM, 1 IN 1 M
     Dates: start: 20191121, end: 20191121
  6. FERINJECT [Suspect]
     Active Substance: FERRIC CARBOXYMALTOSE
     Dosage: 100 MILLIGRAM, 1 IN 1 M
     Dates: start: 20190626, end: 20190626
  7. SYMBICORT [Concomitant]
     Active Substance: BUDESONIDE\FORMOTEROL FUMARATE DIHYDRATE
     Indication: PRODUCT USED FOR UNKNOWN INDICATION
     Dosage: 2 DOSAGE FORM (1 DOSAGE FORMS, 2 IN 1 D)
     Dates: start: 1990
  8. FERINJECT [Suspect]
     Active Substance: FERRIC CARBOXYMALTOSE
     Dosage: 100 MILLIGRAM, 1 IN 1 M
     Dates: start: 20190925, end: 20190925
  9. FERINJECT [Suspect]
     Active Substance: FERRIC CARBOXYMALTOSE
     Dosage: 100 MILLIGRAM, 1 IN 1 M
     Dates: start: 20190827, end: 20190827
  10. FERINJECT [Suspect]
     Active Substance: FERRIC CARBOXYMALTOSE
     Dosage: 100 MILLIGRAM, 1 IN 1 M
     Dates: start: 20191219, end: 20191219

REACTIONS (25)
  - Cough [Recovering/Resolving]
  - Dizziness [Recovering/Resolving]
  - Dyspnoea [Recovering/Resolving]
  - Erythema [Recovering/Resolving]
  - Pruritus [Recovering/Resolving]
  - Choking sensation [Recovering/Resolving]
  - Asthenia [Recovering/Resolving]
  - Product preparation issue [Recovering/Resolving]
  - Dry skin [Recovering/Resolving]
  - Laryngitis [Recovering/Resolving]
  - Lip discolouration [Recovering/Resolving]
  - Hot flush [Recovering/Resolving]
  - Aphonia [Recovering/Resolving]
  - Hair disorder [Recovering/Resolving]
  - Influenza like illness [Recovering/Resolving]
  - Heart rate increased [Recovering/Resolving]
  - Anxiety disorder [Recovering/Resolving]
  - Agitation [Recovering/Resolving]
  - Nausea [Recovering/Resolving]
  - Headache [Recovering/Resolving]
  - Sleep disorder [Recovering/Resolving]
  - Malaise [Recovering/Resolving]
  - Blood pressure increased [Recovering/Resolving]
  - Presyncope [Recovering/Resolving]
  - Rash [Recovering/Resolving]

NARRATIVE: CASE EVENT DATE: 20190612
